FAERS Safety Report 8906994 (Version 7)
Quarter: 2014Q1

REPORT INFORMATION
  Report Type: Report from Study
  Country: JP (occurrence: JP)
  Receive Date: 20121114
  Receipt Date: 20140320
  Transmission Date: 20141002
  Serious: Yes (Hospitalization, Other)
  Sender: FDA-Public Use
  Company Number: JP-VERTEX PHARMACEUTICAL INC.-AE-2012-004626

PATIENT
  Age: 42 Year
  Sex: Female

DRUGS (13)
  1. VX-950 (TELAPREVIR) [Suspect]
     Indication: CHRONIC HEPATITIS C
     Dosage: 1500 MG, QD
     Route: 048
     Dates: start: 20120124, end: 20120322
  2. PEGINTRON [Suspect]
     Indication: CHRONIC HEPATITIS C
     Dosage: 1.5 ?G/KG, QW
     Route: 058
     Dates: start: 20120124, end: 20120319
  3. PEGINTRON [Suspect]
     Dosage: 1.5 ?G/KG, QW
     Route: 058
     Dates: start: 20120403, end: 20120501
  4. PEGINTRON [Suspect]
     Dosage: 1.7 ?G/KG, QW
     Route: 058
     Dates: start: 20120507
  5. REBETOL [Suspect]
     Indication: CHRONIC HEPATITIS C
     Dosage: 400 MG, QD
     Route: 048
     Dates: start: 20120124, end: 20120322
  6. REBETOL [Suspect]
     Dosage: 400 MG, QD
     Route: 048
     Dates: start: 20120406
  7. LOXOPROFEN [Suspect]
     Indication: PRODUCT USED FOR UNKNOWN INDICATION
     Dosage: 3 DF QD, PRN
     Route: 048
     Dates: start: 20120319, end: 20120322
  8. VOLTAREN [Suspect]
     Indication: PRODUCT USED FOR UNKNOWN INDICATION
     Dosage: 3 DF QD, PRN
     Route: 054
     Dates: start: 20120319, end: 20120322
  9. THYRADIN S [Concomitant]
     Dosage: 25 MG, QD
     Route: 048
  10. XYZAL [Concomitant]
     Dosage: 5 MG, QD
     Route: 048
     Dates: start: 20120124
  11. CALONAL [Concomitant]
     Dosage: 600 MG, QD
     Route: 048
     Dates: start: 20120124, end: 20120318
  12. DERMOVATE [Concomitant]
     Dosage: UNK, QD
     Route: 061
     Dates: start: 20120124
  13. FEROTYM [Concomitant]
     Dosage: 50 MG, QD
     Route: 048

REACTIONS (5)
  - Abdominal pain [Recovered/Resolved]
  - Upper respiratory tract inflammation [Recovered/Resolved]
  - Pyrexia [Recovered/Resolved]
  - White blood cell count decreased [Recovering/Resolving]
  - Drug reaction with eosinophilia and systemic symptoms [Recovered/Resolved]
